FAERS Safety Report 11265307 (Version 1)
Quarter: 2015Q3

REPORT INFORMATION
  Report Type: Report from Study
  Country: US (occurrence: US)
  Receive Date: 20150713
  Receipt Date: 20150713
  Transmission Date: 20151125
  Serious: Yes (Other)
  Sender: FDA-Public Use
  Company Number: US-BIOGENIDEC-2014BI100975

PATIENT
  Age: 28 Year
  Sex: Female
  Weight: 49 kg

DRUGS (2)
  1. AVONEX [Suspect]
     Active Substance: INTERFERON BETA-1A
     Indication: MULTIPLE SCLEROSIS
     Route: 030
     Dates: start: 20100525
  2. AVONEX [Suspect]
     Active Substance: INTERFERON BETA-1A
     Indication: MULTIPLE SCLEROSIS
     Route: 030
     Dates: start: 20061206, end: 20081101

REACTIONS (31)
  - Abnormal loss of weight [Recovered/Resolved]
  - Infection [Not Recovered/Not Resolved]
  - Benign bone neoplasm [Not Recovered/Not Resolved]
  - Fall [Not Recovered/Not Resolved]
  - Blood pressure abnormal [Not Recovered/Not Resolved]
  - Bacterial infection [Recovered/Resolved]
  - Malaise [Recovered/Resolved]
  - Syncope [Not Recovered/Not Resolved]
  - Gastric disorder [Recovered/Resolved]
  - Blood pressure increased [Not Recovered/Not Resolved]
  - Hypotonia [Not Recovered/Not Resolved]
  - Pyrexia [Recovered/Resolved]
  - Haemorrhage [Not Recovered/Not Resolved]
  - Thyroid disorder [Not Recovered/Not Resolved]
  - Emotional distress [Not Recovered/Not Resolved]
  - Gait disturbance [Not Recovered/Not Resolved]
  - Spinal pain [Not Recovered/Not Resolved]
  - Gastrointestinal disorder [Recovered/Resolved]
  - Blood urine present [Recovered/Resolved]
  - Ocular hyperaemia [Unknown]
  - Cubital tunnel syndrome [Not Recovered/Not Resolved]
  - Gluten sensitivity [Not Recovered/Not Resolved]
  - Palpitations [Not Recovered/Not Resolved]
  - Weight fluctuation [Unknown]
  - Tremor [Not Recovered/Not Resolved]
  - Menstrual disorder [Not Recovered/Not Resolved]
  - Hypoaesthesia [Not Recovered/Not Resolved]
  - Drug intolerance [Not Recovered/Not Resolved]
  - Adverse drug reaction [Recovered/Resolved]
  - Cardiac flutter [Not Recovered/Not Resolved]
  - Abdominal discomfort [Not Recovered/Not Resolved]

NARRATIVE: CASE EVENT DATE: 20061206
